FAERS Safety Report 9068860 (Version 2)
Quarter: 2013Q1

REPORT INFORMATION
  Report Type: Spontaneous
  Country: GB (occurrence: GB)
  Receive Date: 20130128
  Receipt Date: 20130220
  Transmission Date: 20140127
  Serious: Yes (Death)
  Sender: FDA-Public Use
  Company Number: PHFR2013GB000857

PATIENT
  Age: 70 Year
  Sex: Female

DRUGS (4)
  1. CLOZARIL [Suspect]
     Indication: SCHIZOPHRENIA
     Dosage: UNK
     Dates: start: 20010314
  2. METFORMIN [Concomitant]
     Indication: DIABETES MELLITUS
     Dosage: 2 G
     Route: 048
  3. RAMIPRIL [Concomitant]
     Indication: HYPERTENSION
     Dosage: 10 MG
     Route: 048
  4. AMLODIPINE [Concomitant]
     Dosage: 10 MG, UNK
     Route: 048

REACTIONS (1)
  - Sudden death [Fatal]
